FAERS Safety Report 25869086 (Version 1)
Quarter: 2025Q4

REPORT INFORMATION
  Report Type: Spontaneous
  Country: MX (occurrence: MX)
  Receive Date: 20251001
  Receipt Date: 20251001
  Transmission Date: 20260118
  Serious: Yes (Life-Threatening, Hospitalization)
  Sender: BAYER HEALTHCARE PHARMACEUTICALS INC.
  Company Number: MX-BAYER-2025A128138

PATIENT
  Age: 55 Year
  Sex: Female

DRUGS (1)
  1. ULTRAVIST [Suspect]
     Active Substance: IOPROMIDE
     Indication: Computerised tomogram abdomen
     Dosage: ONCE
     Route: 042
     Dates: start: 20250919, end: 20250919

REACTIONS (9)
  - Throat irritation [None]
  - Lip swelling [None]
  - Swollen tongue [None]
  - Pharyngeal swelling [None]
  - Aphasia [None]
  - Inflammation [Recovering/Resolving]
  - Dyspnoea [None]
  - Dizziness [None]
  - Syncope [None]

NARRATIVE: CASE EVENT DATE: 20250919
